FAERS Safety Report 9230963 (Version 3)
Quarter: 2013Q3

REPORT INFORMATION
  Report Type: Report from Study
  Country: PL (occurrence: PL)
  Receive Date: 20130415
  Receipt Date: 20130801
  Transmission Date: 20140515
  Serious: Yes (Hospitalization, Other)
  Sender: FDA-Public Use
  Company Number: PL-ROCHE-1204884

PATIENT
  Age: 50 Year
  Sex: Female
  Weight: 70.7 kg

DRUGS (19)
  1. RIBAVIRIN [Suspect]
     Route: 048
     Dates: end: 20130320
  2. VX-222 (HCV NS5B INHIBITOR) [Suspect]
     Indication: HEPATITIS C
     Route: 048
     Dates: start: 20121220, end: 20130313
  3. TELAPREVIR [Suspect]
     Indication: HEPATITIS C
     Route: 048
     Dates: start: 20121220, end: 20130313
  4. MILURIT [Concomitant]
  5. BIOFUROKSYM [Concomitant]
  6. FUROSEMIDE [Concomitant]
  7. AVEDOL [Concomitant]
  8. POTASSIUM CHLORIDE [Concomitant]
  9. ANESTELOC [Concomitant]
  10. CODIPAR (POLAND) [Concomitant]
  11. CYCLONAMINE [Concomitant]
  12. FERROUS SULPHATE [Concomitant]
  13. CLEMASTIN [Concomitant]
  14. FLOXAL [Concomitant]
  15. FOLIC ACID [Concomitant]
  16. SPIRONOL [Concomitant]
  17. NIVESTIM [Concomitant]
  18. PEG-INTERFERON ALFA 2A [Suspect]
     Indication: HEPATITIS C
     Route: 058
     Dates: start: 20121220, end: 20130320
  19. RIBAVIRIN [Suspect]
     Indication: HEPATITIS C
     Route: 048
     Dates: start: 20121220

REACTIONS (4)
  - Dehydration [Not Recovered/Not Resolved]
  - Diarrhoea [Not Recovered/Not Resolved]
  - Ascites [Recovered/Resolved]
  - Pancytopenia [Recovered/Resolved]
